FAERS Safety Report 17142848 (Version 3)
Quarter: 2019Q4

REPORT INFORMATION
  Report Type: Report from Study
  Country: US (occurrence: US)
  Receive Date: 20191211
  Receipt Date: 20191227
  Transmission Date: 20200122
  Serious: Yes (Other)
  Sender: FDA-Public Use
  Company Number: NVSC2019US061315

PATIENT
  Age: 59 Year
  Sex: Female

DRUGS (1)
  1. BEOVU [Suspect]
     Active Substance: BROLUCIZUMAB-DBLL
     Indication: NEOVASCULAR AGE-RELATED MACULAR DEGENERATION
     Dosage: 1 DF, QD
     Route: 047
     Dates: start: 20191030

REACTIONS (7)
  - Visual acuity reduced [Recovering/Resolving]
  - Eye pain [Unknown]
  - Eye inflammation [Unknown]
  - Vision blurred [Unknown]
  - Necrotising retinitis [Unknown]
  - Retinal haemorrhage [Unknown]
  - Foreign body in eye [Unknown]

NARRATIVE: CASE EVENT DATE: 20191202
